FAERS Safety Report 10581793 (Version 5)
Quarter: 2015Q1

REPORT INFORMATION
  Report Type: Report from Study
  Country: US (occurrence: US)
  Receive Date: 20141113
  Receipt Date: 20150212
  Transmission Date: 20150720
  Serious: Yes (Hospitalization, Other)
  Sender: FDA-Public Use
  Company Number: US-ACTELION-A-NJ2014-107819

PATIENT
  Age: 72 Year
  Sex: Female

DRUGS (2)
  1. RIOCIGUAT [Suspect]
     Active Substance: RIOCIGUAT
     Indication: PULMONARY ARTERIAL HYPERTENSION
     Dosage: 4.5 MG, TID
     Route: 048
     Dates: start: 20140306
  2. TRACLEER [Suspect]
     Active Substance: BOSENTAN\BOSENTAN MONOHYDRATE
     Indication: PULMONARY ARTERIAL HYPERTENSION
     Dosage: UNK
     Route: 048

REACTIONS (16)
  - Anaemia [Unknown]
  - Transfusion [Unknown]
  - Haemoglobin decreased [Unknown]
  - Streptococcal sepsis [Unknown]
  - Pyrexia [Unknown]
  - Atrial fibrillation [Unknown]
  - Swelling [Unknown]
  - Alopecia [Unknown]
  - Dyspnoea [Unknown]
  - Ascites [Unknown]
  - Infection [Unknown]
  - Cardiac murmur [Unknown]
  - Fatigue [Unknown]
  - Transfusion [Unknown]
  - Packed red blood cell transfusion [Unknown]
  - Oedema peripheral [Unknown]

NARRATIVE: CASE EVENT DATE: 20141023
